FAERS Safety Report 8965794 (Version 1)
Quarter: 2012Q4

REPORT INFORMATION
  Report Type: Spontaneous
  Country: JP (occurrence: None)
  Receive Date: 20121204
  Receipt Date: 20121204
  Transmission Date: 20130627
  Serious: Yes (Hospitalization)
  Sender: FDA-Public Use
  Company Number: DSJ-2012-22132

PATIENT

DRUGS (2)
  1. OLMETEC (OLMESARTAN MEDOXOMIL) [Suspect]
     Indication: HYPERTENSION
     Route: 048
     Dates: start: 201111, end: 20121113
  2. NORVASC (AMLODIPINE BESILATE) [Concomitant]

REACTIONS (1)
  - Eosinophilic pneumonia [None]
